FAERS Safety Report 22123354 (Version 6)
Quarter: 2024Q4

REPORT INFORMATION
  Report Type: Spontaneous
  Country: BR (occurrence: BR)
  Receive Date: 20230322
  Receipt Date: 20241004
  Transmission Date: 20250115
  Serious: Yes (Other)
  Sender: CELLTRION
  Company Number: BR-CELLTRION INC.-2022BR020201

PATIENT

DRUGS (7)
  1. INFLIXIMAB [Suspect]
     Active Substance: INFLIXIMAB
     Indication: Rheumatoid arthritis
     Dosage: 3 AMPOULES OF 100 MG EACH (300 MG TOTAL) EVERY 2 MONTHS
     Route: 042
     Dates: start: 20220927
  2. INFLIXIMAB [Suspect]
     Active Substance: INFLIXIMAB
     Dosage: 3 AMPOULES OF 100 MG EACH (300 MG TOTAL) EVERY 2 MONTHS
     Route: 042
     Dates: start: 20231109
  3. INFLIXIMAB [Suspect]
     Active Substance: INFLIXIMAB
     Dosage: 3 AMPOULES OF 100 MG EACH (300 MG TOTAL) EVERY 2 MONTHS
     Route: 042
     Dates: start: 20240815
  4. PRELONE [Concomitant]
     Active Substance: PREDNISOLONE
     Indication: Rheumatoid arthritis
     Dosage: 2 CAPSULES A DAY
     Route: 048
  5. ATENOLOL\CHLORTHALIDONE [Concomitant]
     Active Substance: ATENOLOL\CHLORTHALIDONE
     Indication: Hypertension
     Dosage: 2 CAPSULES A DAY
     Route: 048
  6. VITAMIN D NOS [Concomitant]
     Active Substance: CHOLECALCIFEROL\ERGOCALCIFEROL
     Indication: Supplementation therapy
  7. CYANOCOBALAMIN [Concomitant]
     Active Substance: CYANOCOBALAMIN
     Indication: Supplementation therapy

REACTIONS (9)
  - Upper limb fracture [Unknown]
  - Exostosis [Unknown]
  - Fall [Recovering/Resolving]
  - Malaise [Recovered/Resolved]
  - Back pain [Unknown]
  - Nasopharyngitis [Unknown]
  - Pain [Unknown]
  - Arthralgia [Recovering/Resolving]
  - Intentional dose omission [Unknown]

NARRATIVE: CASE EVENT DATE: 20230202
